FAERS Safety Report 10090700 (Version 1)
Quarter: 2014Q2

REPORT INFORMATION
  Report Type: Report from Study
  Country: JP (occurrence: JP)
  Receive Date: 20140421
  Receipt Date: 20140421
  Transmission Date: 20141212
  Serious: Yes (Other)
  Sender: FDA-Public Use
  Company Number: JP-SHIONOGI, INC-2014000296

PATIENT
  Age: 71 Year
  Sex: Female

DRUGS (6)
  1. FINIBAX [Suspect]
     Indication: FEBRILE NEUTROPENIA
     Dosage: 3 G, QD
     Route: 065
     Dates: start: 20130418
  2. ITRACONAZOLE [Suspect]
     Indication: FEBRILE NEUTROPENIA
     Dosage: 200 MG, QD
     Route: 048
     Dates: start: 20130208, end: 20130228
  3. ITRACONAZOLE [Suspect]
     Dosage: 200 MG, QD
     Route: 048
     Dates: start: 20130419
  4. TAKEPRON [Concomitant]
     Indication: PROPHYLAXIS
     Dosage: 15 MG, QD
     Route: 048
  5. CLOSTRIDIUM BUTYRICUM [Concomitant]
     Indication: PROPHYLAXIS
     Dosage: 6 DF, QD
     Route: 048
  6. CYLOCIDE [Concomitant]
     Indication: ACUTE MYELOID LEUKAEMIA
     Dosage: 33 MG, QD
     Route: 065

REACTIONS (3)
  - Febrile neutropenia [Recovered/Resolved]
  - C-reactive protein increased [Recovering/Resolving]
  - Off label use [Unknown]
